FAERS Safety Report 9506061 (Version 1)
Quarter: 2013Q1

REPORT INFORMATION
  Report Type: Spontaneous
  Country: US (occurrence: None)
  Receive Date: 20130305
  Receipt Date: 20130305
  Transmission Date: 20140127
  Serious: Yes (Other)
  Sender: FDA-Public Use
  Company Number: 163-21880-12052485

PATIENT
  Age: 60 Year
  Sex: Male
  Weight: 81.65 kg

DRUGS (2)
  1. REVLIMID [Suspect]
     Indication: PLASMA CELL MYELOMA
     Dosage: 21 IN 21 D
     Route: 048
     Dates: start: 201202
  2. DECADRON(DEXAMETHASONE) [Concomitant]

REACTIONS (8)
  - Pain in extremity [None]
  - Erythema [None]
  - Myosclerosis [None]
  - Plasmacytoma [None]
  - Back pain [None]
  - Constipation [None]
  - Nerve compression [None]
  - Neuropathy peripheral [None]
